FAERS Safety Report 20520420 (Version 1)
Quarter: 2022Q1

REPORT INFORMATION
  Report Type: Spontaneous
  Country: MX (occurrence: MX)
  Receive Date: 20220225
  Receipt Date: 20220225
  Transmission Date: 20220423
  Serious: Yes (Hospitalization, Other)
  Sender: FDA-Public Use
  Company Number: MX-009507513-2202MEX005915

PATIENT
  Age: 67 Year
  Sex: Male

DRUGS (1)
  1. PEMBROLIZUMAB [Suspect]
     Active Substance: PEMBROLIZUMAB
     Indication: Malignant melanoma
     Dosage: FIRST CYCLE

REACTIONS (6)
  - Atrioventricular block complete [Recovered/Resolved]
  - Atrioventricular block second degree [Recovered/Resolved]
  - Gait disturbance [Recovering/Resolving]
  - Eyelid ptosis [Recovering/Resolving]
  - Myocarditis [Recovered/Resolved]
  - Myositis [Recovering/Resolving]
